FAERS Safety Report 13265544 (Version 4)
Quarter: 2025Q4

REPORT INFORMATION
  Report Type: Spontaneous
  Country: US (occurrence: US)
  Receive Date: 20170223
  Receipt Date: 20251204
  Transmission Date: 20260118
  Serious: Yes (Death, Other)
  Sender: JOHNSON AND JOHNSON
  Company Number: US-JNJFOC-20170217179

PATIENT

DRUGS (1)
  1. INFLIXIMAB [Suspect]
     Active Substance: INFLIXIMAB
     Indication: Acute graft versus host disease
     Route: 041

REACTIONS (21)
  - Fungal infection [Fatal]
  - Pneumonia cytomegaloviral [Fatal]
  - Bacterial infection [Fatal]
  - Bacteraemia [Unknown]
  - Cytomegalovirus infection reactivation [Unknown]
  - Sepsis [Unknown]
  - Neutropenia [Unknown]
  - Cytomegalovirus viraemia [Unknown]
  - Viral haemorrhagic cystitis [Unknown]
  - Cellulitis [Unknown]
  - Pyelonephritis [Unknown]
  - Clostridium difficile colitis [Unknown]
  - Pneumonia [Unknown]
  - Pneumonia fungal [Unknown]
  - Pulmonary mucormycosis [Unknown]
  - Cytomegalovirus colitis [Unknown]
  - Epstein-Barr virus infection reactivation [Unknown]
  - Pneumonia fungal [Unknown]
  - Off label use [Unknown]
  - Product use in unapproved indication [Unknown]
  - Drug ineffective for unapproved indication [Unknown]
